FAERS Safety Report 9405461 (Version 1)
Quarter: 2013Q3

REPORT INFORMATION
  Report Type: Spontaneous
  Country: GB (occurrence: GB)
  Receive Date: 20130715
  Receipt Date: 20130715
  Transmission Date: 20140515
  Serious: Yes (Hospitalization)
  Sender: FDA-Public Use
  Company Number: 1786861

PATIENT
  Age: 16 Year
  Sex: Male
  Weight: 48.7 kg

DRUGS (17)
  1. (VINCRISTINE SULFATE) [Suspect]
     Indication: SARCOMA
     Dates: start: 20110924
  2. DOXORUBICIN HYDROCHLORIDE [Suspect]
     Indication: SARCOMA
     Route: 050
     Dates: start: 20110924
  3. ACTINOMYCIN D [Suspect]
     Indication: SARCOMA
     Route: 050
     Dates: start: 20110924
  4. BEVACIZUMAB [Suspect]
     Indication: SARCOMA
     Route: 050
     Dates: start: 20110924
  5. IFOSFAMIDE [Suspect]
     Indication: SARCOMA
     Route: 042
     Dates: start: 20110925
  6. (MESNA) [Concomitant]
  7. (DOCUSATE SODIUM) [Concomitant]
  8. (HYOSCINE) [Concomitant]
  9. (PARACETAMOL) [Concomitant]
  10. (MELATONIN) [Concomitant]
  11. (MORPHINE SULPHATE) [Concomitant]
  12. (ONDANSETRON) [Concomitant]
  13. (METOCLOPRAMIDE) [Concomitant]
  14. (OMEPRAZOLE) [Concomitant]
  15. (TRIMETHOPRIM SULFAMETHOXAZOLE) [Concomitant]
  16. (OTHER MINERAL SUPPLEMENTS) [Concomitant]
  17. (CHLORPHENIRAMINE) [Concomitant]

REACTIONS (4)
  - Febrile neutropenia [None]
  - Ingrowing nail [None]
  - Epistaxis [None]
  - Haemoglobin decreased [None]
